FAERS Safety Report 11739121 (Version 1)
Quarter: 2015Q4

REPORT INFORMATION
  Report Type: Report from Study
  Country: GB (occurrence: GB)
  Receive Date: 20151113
  Receipt Date: 20151113
  Transmission Date: 20160304
  Serious: Yes (Other)
  Sender: FDA-Public Use
  Company Number: GB-BRISTOL-MYERS SQUIBB COMPANY-15583552

PATIENT
  Age: 14 Year
  Sex: Female

DRUGS (3)
  1. VIRAMUNE [Concomitant]
     Active Substance: NEVIRAPINE
     Indication: ANTIRETROVIRAL THERAPY
     Dosage: 200 MG, QD
     Route: 048
     Dates: start: 20090707
  2. EPZICOM [Concomitant]
     Active Substance: ABACAVIR SULFATE\LAMIVUDINE
     Indication: ANTIRETROVIRAL THERAPY
     Dosage: 1 DF, QD
     Route: 048
     Dates: start: 20080702
  3. EFAVIRENZ [Suspect]
     Active Substance: EFAVIRENZ
     Indication: ANTIRETROVIRAL THERAPY
     Dosage: 600 MG, QD
     Route: 048
     Dates: start: 20080702, end: 20090706

REACTIONS (2)
  - Abortion induced [Unknown]
  - Maternal exposure during pregnancy [Recovered/Resolved]

NARRATIVE: CASE EVENT DATE: 20090714
